FAERS Safety Report 19645697 (Version 5)
Quarter: 2022Q2

REPORT INFORMATION
  Report Type: Report from Study
  Country: GB (occurrence: GB)
  Receive Date: 20210802
  Receipt Date: 20220602
  Transmission Date: 20220720
  Serious: Yes (Death, Other)
  Sender: FDA-Public Use
  Company Number: GB-SHIRE-GB201822269

PATIENT
  Age: 54 Year
  Sex: Male
  Weight: 78 kg

DRUGS (17)
  1. TEDUGLUTIDE [Suspect]
     Active Substance: TEDUGLUTIDE
     Indication: Short-bowel syndrome
     Dosage: 0.41 MILLIGRAM
     Route: 058
     Dates: start: 20160616
  2. TEDUGLUTIDE [Suspect]
     Active Substance: TEDUGLUTIDE
     Indication: Short-bowel syndrome
     Dosage: 0.41 MILLIGRAM
     Route: 058
     Dates: start: 20160616
  3. TEDUGLUTIDE [Suspect]
     Active Substance: TEDUGLUTIDE
     Indication: Short-bowel syndrome
     Dosage: 0.41 MILLIGRAM
     Route: 058
     Dates: start: 20160616
  4. TEDUGLUTIDE [Suspect]
     Active Substance: TEDUGLUTIDE
     Indication: Short-bowel syndrome
     Dosage: 0.41 MILLIGRAM
     Route: 058
     Dates: start: 20160616
  5. TEDUGLUTIDE [Suspect]
     Active Substance: TEDUGLUTIDE
     Dosage: 0.14 MILLIGRAM/KILOGRAM, MONTHLY
     Route: 058
     Dates: start: 20131202
  6. TEDUGLUTIDE [Suspect]
     Active Substance: TEDUGLUTIDE
     Dosage: 0.14 MILLIGRAM/KILOGRAM, MONTHLY
     Route: 058
     Dates: start: 20131202
  7. TEDUGLUTIDE [Suspect]
     Active Substance: TEDUGLUTIDE
     Dosage: 0.14 MILLIGRAM/KILOGRAM, MONTHLY
     Route: 058
     Dates: start: 20131202
  8. TEDUGLUTIDE [Suspect]
     Active Substance: TEDUGLUTIDE
     Dosage: 0.14 MILLIGRAM/KILOGRAM, MONTHLY
     Route: 058
     Dates: start: 20131202
  9. TEDUGLUTIDE [Suspect]
     Active Substance: TEDUGLUTIDE
     Dosage: 1.03 MILLIGRAM, 4/WEEK
     Route: 058
     Dates: start: 20131202
  10. TEDUGLUTIDE [Suspect]
     Active Substance: TEDUGLUTIDE
     Dosage: 1.03 MILLIGRAM, 4/WEEK
     Route: 058
     Dates: start: 20131202
  11. TEDUGLUTIDE [Suspect]
     Active Substance: TEDUGLUTIDE
     Dosage: 1.03 MILLIGRAM, 4/WEEK
     Route: 058
     Dates: start: 20131202
  12. TEDUGLUTIDE [Suspect]
     Active Substance: TEDUGLUTIDE
     Dosage: 1.03 MILLIGRAM, 4/WEEK
     Route: 058
     Dates: start: 20131202
  13. ZOLEDRONIC ACID [Concomitant]
     Active Substance: ZOLEDRONIC ACID
     Indication: Osteopenia
     Dosage: 5 MILLIGRAM, ONCE A YEAR
     Route: 042
     Dates: start: 20101111
  14. ZOLEDRONIC ACID [Concomitant]
     Active Substance: ZOLEDRONIC ACID
     Indication: Osteoporosis
  15. CYCLIZINE [Concomitant]
     Active Substance: CYCLIZINE
     Indication: Nausea
     Dosage: ORA50 MILLIGRAM, TID
     Route: 048
     Dates: start: 20100419
  16. CODEINE PHOSPHATE [Concomitant]
     Active Substance: CODEINE PHOSPHATE
     Indication: Diarrhoea
     Dosage: 60 MILLIGRAM, TID
     Route: 048
     Dates: start: 20100419
  17. LOPERAMIDE [Concomitant]
     Active Substance: LOPERAMIDE
     Indication: Diarrhoea
     Dosage: 12 MILLIGRAM, TID
     Route: 048
     Dates: start: 20100419

REACTIONS (1)
  - Arteriosclerosis coronary artery [Fatal]

NARRATIVE: CASE EVENT DATE: 20180528
